FAERS Safety Report 24096612 (Version 1)
Quarter: 2024Q3

REPORT INFORMATION
  Report Type: Spontaneous
  Country: CN (occurrence: CN)
  Receive Date: 20240716
  Receipt Date: 20240716
  Transmission Date: 20241016
  Serious: Yes (Hospitalization)
  Sender: ELI LILLY AND CO
  Company Number: CN-Merck Healthcare KGaA-2024036867

PATIENT
  Age: 59 Year
  Sex: Male
  Weight: 70 kg

DRUGS (2)
  1. ERBITUX [Suspect]
     Active Substance: CETUXIMAB
     Indication: Nasal cavity cancer
     Dosage: 700 MG, UNKNOWN
     Route: 041
     Dates: start: 20240627
  2. PACLITAXEL [Suspect]
     Active Substance: PACLITAXEL
     Indication: Nasal cavity cancer
     Dosage: 400 MG, DAILY
     Route: 041
     Dates: start: 20240627, end: 20240627

REACTIONS (1)
  - Myelosuppression [Recovering/Resolving]

NARRATIVE: CASE EVENT DATE: 20240629
